FAERS Safety Report 14361872 (Version 4)
Quarter: 2018Q4

REPORT INFORMATION
  Report Type: Spontaneous
  Country: CA (occurrence: CA)
  Receive Date: 20180108
  Receipt Date: 20181214
  Transmission Date: 20190204
  Serious: Yes (Hospitalization, Other)
  Sender: FDA-Public Use
  Company Number: CA-CONCORDIA PHARMACEUTICALS INC.-GSH201801-000055

PATIENT
  Age: 44 Year
  Sex: Male

DRUGS (12)
  1. PREDNISONE. [Suspect]
     Active Substance: PREDNISONE
     Indication: ARTHRITIS
     Route: 065
  2. REMICADE [Suspect]
     Active Substance: INFLIXIMAB
     Route: 042
  3. SULFASALAZINE. [Suspect]
     Active Substance: SULFASALAZINE
     Indication: PRODUCT USED FOR UNKNOWN INDICATION
     Route: 048
  4. ENBREL [Suspect]
     Active Substance: ETANERCEPT
     Indication: PRODUCT USED FOR UNKNOWN INDICATION
     Route: 058
  5. METHOTREXATE. [Suspect]
     Active Substance: METHOTREXATE
     Indication: RHEUMATOID ARTHRITIS
     Route: 048
  6. ARAVA [Suspect]
     Active Substance: LEFLUNOMIDE
     Indication: PRODUCT USED FOR UNKNOWN INDICATION
     Route: 065
  7. CELECOXIB. [Suspect]
     Active Substance: CELECOXIB
     Indication: RHEUMATOID ARTHRITIS
     Route: 048
  8. ORENCIA [Suspect]
     Active Substance: ABATACEPT
     Route: 058
  9. PLAQUENIL [Suspect]
     Active Substance: HYDROXYCHLOROQUINE SULFATE
     Route: 048
  10. ARAVA [Suspect]
     Active Substance: LEFLUNOMIDE
     Route: 058
  11. ORENCIA [Suspect]
     Active Substance: ABATACEPT
     Indication: PRODUCT USED FOR UNKNOWN INDICATION
     Route: 042
  12. METHOTREXATE SODIUM. [Suspect]
     Active Substance: METHOTREXATE SODIUM
     Indication: RHEUMATOID ARTHRITIS
     Route: 048

REACTIONS (12)
  - Drug intolerance [Unknown]
  - Gastrointestinal disorder [Unknown]
  - Disease progression [Unknown]
  - Impaired work ability [Unknown]
  - Abdominal discomfort [Unknown]
  - Asthenia [Unknown]
  - Visual impairment [Unknown]
  - Condition aggravated [Unknown]
  - Drug ineffective [Unknown]
  - No adverse event [Unknown]
  - Respiratory arrest [Unknown]
  - Internal haemorrhage [Unknown]
